FAERS Safety Report 6521124-9 (Version None)
Quarter: 2009Q4

REPORT INFORMATION
  Report Type: 
  Country: None (occurrence: None)
  Receive Date: 20091222
  Receipt Date: 20091215
  Transmission Date: 20100525
  Serious: Yes (Hospitalization)
  Sender: FDA-Public Use
  Company Number: 2009AL007804

PATIENT
  Age: 59 Year
  Sex: Female

DRUGS (4)
  1. PHENYTOIN [Suspect]
     Indication: CONVULSION
     Dosage: 300 MG; QD; PO
     Route: 048
  2. ALBUTEROL SULFATE [Suspect]
     Dosage: PRN;INH
     Route: 055
  3. LISINOPRIL [Concomitant]
  4. TIOTROPIUM [Concomitant]

REACTIONS (13)
  - ABDOMINAL DISCOMFORT [None]
  - DECREASED APPETITE [None]
  - DRUG HYPERSENSITIVITY [None]
  - DYSPHAGIA [None]
  - ERYTHEMA [None]
  - GENERAL PHYSICAL HEALTH DETERIORATION [None]
  - HEPATIC FAILURE [None]
  - LYMPHADENOPATHY [None]
  - PYREXIA [None]
  - RASH MACULO-PAPULAR [None]
  - RASH PRURITIC [None]
  - RESPIRATORY DISORDER [None]
  - WHITE BLOOD CELL COUNT INCREASED [None]
